FAERS Safety Report 6124254-9 (Version None)
Quarter: 2009Q1

REPORT INFORMATION
  Report Type: 
  Country: None (occurrence: None)
  Receive Date: 20090319
  Receipt Date: 20090309
  Transmission Date: 20090719
  Serious: Yes (Other)
  Sender: FDA-Public Use
  Company Number: IT-WATSON-2009-01608

PATIENT
  Age: 8 Year
  Sex: Female

DRUGS (3)
  1. CYCLOSPORINE (WATSON LABORATORIES) [Suspect]
     Indication: GRAFT VERSUS HOST DISEASE
     Dosage: 2 MG/KG, DAILY
     Route: 042
     Dates: start: 19960101
  2. PREDNISONE [Suspect]
     Indication: CHRONIC GRAFT VERSUS HOST DISEASE
     Dosage: UNK
     Route: 065
     Dates: start: 19960101
  3. METHOTREXATE [Suspect]
     Indication: GRAFT VERSUS HOST DISEASE
     Dosage: 16MG/MM DAY 1, 10MG/MM DAYS 3,6,11
     Dates: start: 19960101

REACTIONS (1)
  - SKIN CANCER [None]
